FAERS Safety Report 4390428-0 (Version None)
Quarter: 2004Q2

REPORT INFORMATION
  Report Type: 
  Country: None (occurrence: None)
  Receive Date: 20040630
  Receipt Date: 20040617
  Transmission Date: 20050107
  Serious: Yes (Death, Hospitalization)
  Sender: FDA-Public Use
  Company Number: 2004219696US

PATIENT
  Age: 82 Year
  Sex: Male

DRUGS (3)
  1. HEPARIN SODIUM INJECTION [Suspect]
     Dosage: 5000 U, TOTAL , IV
     Route: 042
  2. TROMBYL (ACETYLSALICYLIC ACID, ACETYLSALICYLIC ACID) TABLET [Suspect]
     Dosage: 325 MG, DAILY, ORAL
     Route: 048
  3. CLOPIDOGREL(CLOPIDOGREL) [Suspect]
     Dosage: 300 MG UND ORAL
     Route: 048

REACTIONS (10)
  - COMA [None]
  - CORNEAL REFLEX DECREASED [None]
  - HEMIPLEGIA [None]
  - INTRAVENTRICULAR HAEMORRHAGE [None]
  - MYDRIASIS [None]
  - PAIN IN EXTREMITY [None]
  - POST PROCEDURAL COMPLICATION [None]
  - PUPILLARY DISORDER [None]
  - PUPILS UNEQUAL [None]
  - THALAMUS HAEMORRHAGE [None]
